FAERS Safety Report 9914039 (Version 1)
Quarter: 2014Q1

REPORT INFORMATION
  Report Type: Spontaneous
  Country: FR (occurrence: FR)
  Receive Date: 20140220
  Receipt Date: 20140220
  Transmission Date: 20141002
  Serious: Yes (Death, Hospitalization)
  Sender: FDA-Public Use
  Company Number: FR-GLAXOSMITHKLINE-B0969197A

PATIENT
  Age: 91 Year
  Sex: Female
  Weight: 80 kg

DRUGS (5)
  1. ARIXTRA [Suspect]
     Indication: THROMBOPHLEBITIS
     Dosage: 7.5MG PER DAY
     Route: 058
     Dates: start: 201311, end: 20140123
  2. FUROSEMIDE [Concomitant]
     Dosage: 40MG TWICE PER DAY
     Route: 048
  3. MONO-TILDIEM LP [Concomitant]
     Dosage: 200MG PER DAY
     Route: 048
  4. GABAPENTIN [Concomitant]
     Indication: PAIN
     Dosage: 300MG TWICE PER DAY
     Route: 048
  5. KALEORID [Concomitant]
     Dosage: 1000MG TWICE PER DAY
     Route: 048

REACTIONS (6)
  - Haematoma [Fatal]
  - Shock haemorrhagic [Fatal]
  - Blister [Unknown]
  - Hypotension [Unknown]
  - General physical health deterioration [Unknown]
  - Incorrect drug administration duration [Unknown]
